FAERS Safety Report 9210087 (Version 1)
Quarter: 2013Q2

REPORT INFORMATION
  Report Type: Spontaneous
  Country: US (occurrence: US)
  Receive Date: 20130404
  Receipt Date: 20130404
  Transmission Date: 20140414
  Serious: No
  Sender: FDA-Public Use
  Company Number: US-ASTELLAS-2013US003411

PATIENT
  Age: 79 Year
  Sex: Female

DRUGS (1)
  1. MYRBETRIQ [Suspect]
     Indication: PRODUCT USED FOR UNKNOWN INDICATION
     Dosage: 1 TAB OF 25 MG IN MORNING AND 2 TABS IN AFTERNOON, UID/QD
     Route: 048
     Dates: start: 20130308

REACTIONS (1)
  - Accidental overdose [Unknown]
